FAERS Safety Report 12690244 (Version 1)
Quarter: 2016Q3

REPORT INFORMATION
  Report Type: Other
  Country: US (occurrence: US)
  Receive Date: 20160826
  Receipt Date: 20160826
  Transmission Date: 20161109
  Serious: Yes (Other)
  Sender: FDA-Public Use
  Company Number: US-COL_23577_2016

PATIENT
  Age: 54 Year
  Sex: Female

DRUGS (1)
  1. ORIGINAL IRISH SPRING BAR SOAP [Suspect]
     Active Substance: COSMETICS
     Indication: PRODUCT USED FOR UNKNOWN INDICATION
     Dosage: NI/1 TO 2 TIMES DAILY/
     Route: 061

REACTIONS (1)
  - Breast cancer [Recovered/Resolved]

NARRATIVE: CASE EVENT DATE: 200603
